FAERS Safety Report 5030834-4 (Version None)
Quarter: 2006Q2

REPORT INFORMATION
  Report Type: 
  Country: None (occurrence: None)
  Receive Date: 20060619
  Receipt Date: 20060524
  Transmission Date: 20061013
  Serious: Yes (Death)
  Sender: FDA-Public Use
  Company Number: ERP06000050

PATIENT
  Age: 62 Year
  Sex: Male

DRUGS (5)
  1. ACTONEL [Suspect]
     Indication: PROSTATE CANCER
     Dosage: 30 MG, DAILY, ORAL
     Route: 048
     Dates: start: 20060309, end: 20060520
  2. DOCETAXEL(DOCETAXEL) [Suspect]
     Indication: PROSTATE CANCER
     Dosage: 140 MG, EVERY 3WK, INJECTION NOS
     Dates: start: 20060309, end: 20060520
  3. PREDNISONE TAB [Suspect]
     Indication: PROSTATE CANCER
     Dosage: 5 MG, 2/DAY, ORAL
     Route: 048
     Dates: start: 20060309, end: 20060520
  4. OMNIC (TAMSULOSIN HYDROCHLORIDE) [Concomitant]
  5. ZOLADEX [Concomitant]

REACTIONS (8)
  - ANGINA PECTORIS [None]
  - BLOOD LACTATE DEHYDROGENASE INCREASED [None]
  - CIRCULATORY COLLAPSE [None]
  - DYSPNOEA [None]
  - HAEMOGLOBIN DECREASED [None]
  - HEART RATE INCREASED [None]
  - RECTAL HAEMORRHAGE [None]
  - WHITE BLOOD CELL COUNT DECREASED [None]
